FAERS Safety Report 10011642 (Version 3)
Quarter: 2014Q2

REPORT INFORMATION
  Report Type: Spontaneous
  Country: US (occurrence: US)
  Receive Date: 20140314
  Receipt Date: 20140505
  Transmission Date: 20141212
  Serious: Yes (Death, Hospitalization)
  Sender: FDA-Public Use
  Company Number: US-JNJFOC-20140306499

PATIENT
  Age: 61 Year
  Sex: Male
  Weight: 97.07 kg

DRUGS (16)
  1. XARELTO [Suspect]
     Indication: DEEP VEIN THROMBOSIS
     Route: 048
  2. XARELTO [Suspect]
     Indication: DEEP VEIN THROMBOSIS
     Route: 048
     Dates: start: 20121212, end: 20130829
  3. ADVAIR [Concomitant]
     Dosage: ONE TAKE
     Route: 055
  4. NORVASC [Concomitant]
     Route: 048
  5. LIPITOR [Concomitant]
     Dosage: AT BEDTIME
     Route: 048
  6. PROVENTIL HFA INHALANT [Concomitant]
     Route: 055
  7. SINGULAIR [Concomitant]
     Route: 048
  8. CLARITIN [Concomitant]
     Route: 048
  9. OMEGA-3 POLYUNSATURATED FATTY ACIDS [Concomitant]
     Route: 065
  10. REQUIP [Concomitant]
     Dosage: AT BEDTIME
     Route: 048
  11. AMLODIPINE BESYLATE [Concomitant]
     Dosage: ONE TAKE
     Route: 065
  12. ATORVASTATIN CALCIUM [Concomitant]
     Dosage: ONE TAKE
     Route: 065
  13. ROPINIROLE HYDROCHLORIDE [Concomitant]
     Dosage: ONE TAKE
     Route: 048
  14. MULTIPLE VITAMIN INJECTION [Concomitant]
     Dosage: TAKE ONE
     Route: 048
  15. FISH OIL [Concomitant]
     Route: 065
  16. ALBUMIN [Concomitant]
     Dosage: 2 PUFFS
     Route: 065

REACTIONS (6)
  - Cerebral haemorrhage [Fatal]
  - Haemorrhagic stroke [Unknown]
  - Hydrocephalus [Unknown]
  - Brain oedema [Unknown]
  - Coma [Not Recovered/Not Resolved]
  - Inappropriate schedule of drug administration [Unknown]
